FAERS Safety Report 10200767 (Version 2)
Quarter: 2014Q2

REPORT INFORMATION
  Report Type: Other
  Country: US (occurrence: US)
  Receive Date: 20140528
  Receipt Date: 20140528
  Transmission Date: 20141212
  Serious: Yes (Death, Other)
  Sender: FDA-Public Use
  Company Number: US-SHIRE-US201401924

PATIENT
  Age: 7 Year
  Sex: Male
  Weight: 26.3 kg

DRUGS (19)
  1. ELAPRASE [Suspect]
     Indication: MUCOPOLYSACCHARIDOSIS II
     Dosage: 24 MG (FOUR VIALS), 1X/WEEK
     Route: 041
     Dates: start: 20061026, end: 20140424
  2. KEPPRA [Concomitant]
     Indication: PRODUCT USED FOR UNKNOWN INDICATION
     Dosage: 8 ML, 2X/DAY:BID
     Route: 065
  3. PREDNISONE [Concomitant]
     Indication: PREMEDICATION
     Dosage: 20 MG, UNKNOWN
     Route: 065
  4. PREDNISONE [Concomitant]
     Dosage: 40 MG, 1X/WEEK (PREMEDICATION)
  5. HEPARIN [Concomitant]
     Indication: PRODUCT USED FOR UNKNOWN INDICATION
     Dosage: UNK, UNKNOWN
     Route: 065
  6. NORMAL SALINE [Concomitant]
     Indication: PRODUCT USED FOR UNKNOWN INDICATION
     Dosage: UNK, UNKNOWN
     Route: 065
  7. BACTROBAN                          /00753901/ [Concomitant]
     Indication: PRODUCT USED FOR UNKNOWN INDICATION
     Dosage: UNK, UNKNOWN
     Route: 065
  8. EPIPEN JR 2-PAK [Concomitant]
     Indication: PRODUCT USED FOR UNKNOWN INDICATION
     Dosage: UNK, UNKNOWN
     Route: 065
  9. LMX                                /00033401/ [Concomitant]
     Indication: PRODUCT USED FOR UNKNOWN INDICATION
     Dosage: UNK, UNKNOWN
     Route: 065
  10. CHILDREN^S ZYRTEC [Concomitant]
     Indication: PREMEDICATION
     Dosage: 2.5 MG, 1X/WEEK
     Route: 048
  11. RANITIDINE [Concomitant]
     Indication: PRODUCT USED FOR UNKNOWN INDICATION
     Dosage: UNK UNK, UNKNOWN
     Route: 065
  12. CLINDAMYCIN [Concomitant]
     Indication: PRODUCT USED FOR UNKNOWN INDICATION
     Dosage: UNK(75MG/5ML), UNKNOWN
     Route: 065
  13. AUGMENTIN [Concomitant]
     Indication: PRODUCT USED FOR UNKNOWN INDICATION
     Dosage: UNK, UNKNOWN
     Route: 065
  14. VITAMIN B6 [Concomitant]
     Indication: PRODUCT USED FOR UNKNOWN INDICATION
     Dosage: 50 MG, 2X/DAY:BID
     Route: 065
  15. ENALAPRIL MALEATE [Concomitant]
     Indication: PRODUCT USED FOR UNKNOWN INDICATION
     Dosage: 2.5 MG, UNKNOWN
     Route: 065
  16. LISINOPRIL [Concomitant]
     Indication: CARDIAC OUTPUT DECREASED
     Dosage: 2.5 MG, 1X/DAY:QD
     Route: 065
  17. RISPERDAL [Concomitant]
     Indication: PRODUCT USED FOR UNKNOWN INDICATION
     Dosage: 0.5 MG, UNKNOWN
     Route: 065
  18. MELATONIN [Concomitant]
     Indication: PRODUCT USED FOR UNKNOWN INDICATION
     Dosage: 7.5 MG, 1X/DAY:QD (EVERY EVENING)
  19. MOTRIN CHILDRENS [Concomitant]
     Indication: PREMEDICATION
     Dosage: 150 MG, 1X/WEEK
     Route: 048

REACTIONS (10)
  - Respiratory failure [Fatal]
  - Respiratory distress [Fatal]
  - Appendicitis perforated [Recovered/Resolved]
  - Otitis media [Unknown]
  - Deafness bilateral [Unknown]
  - Renal disorder [Unknown]
  - Carpal tunnel syndrome [Unknown]
  - Inguinal hernia [Unknown]
  - Umbilical hernia [Unknown]
  - Central venous catheterisation [Unknown]
